FAERS Safety Report 10560367 (Version 1)
Quarter: 2014Q4

REPORT INFORMATION
  Report Type: Spontaneous
  Country: FR (occurrence: FR)
  Receive Date: 20141103
  Receipt Date: 20141103
  Transmission Date: 20150529
  Serious: Yes (Hospitalization)
  Sender: FDA-Public Use
  Company Number: FR-SA-2014SA149938

PATIENT
  Age: 82 Year
  Sex: Female

DRUGS (13)
  1. TRIATEC [Suspect]
     Active Substance: RAMIPRIL
     Route: 048
     Dates: end: 20141010
  2. CLAFORAN [Concomitant]
     Active Substance: CEFOTAXIME SODIUM
  3. PIROXICAM. [Suspect]
     Active Substance: PIROXICAM
     Route: 048
     Dates: start: 20141008, end: 20141010
  4. AMIODARONE [Concomitant]
     Active Substance: AMIODARONE
  5. NOREPINEPHRINE [Concomitant]
     Active Substance: NOREPINEPHRINE\NOREPINEPHRINE BITARTRATE
  6. LASILIX [Suspect]
     Active Substance: FUROSEMIDE
     Route: 048
     Dates: end: 20141010
  7. ROWASA [Suspect]
     Active Substance: MESALAMINE
     Indication: COLITIS
     Route: 048
     Dates: end: 20141010
  8. SKENAN [Concomitant]
     Active Substance: MORPHINE SULFATE
     Indication: SCIATICA
     Dosage: 60
     Dates: start: 20141008
  9. ROVAMYCIN [Concomitant]
     Active Substance: SPIRAMYCIN
  10. CARDENSIEL [Concomitant]
     Active Substance: BISOPROLOL FUMARATE
  11. GLUCOSE [Concomitant]
     Active Substance: DEXTROSE
  12. PREVISCAN [Concomitant]
     Active Substance: FLUINDIONE
  13. PARIET [Concomitant]
     Active Substance: RABEPRAZOLE SODIUM

REACTIONS (2)
  - Hyperkalaemia [Recovered/Resolved]
  - Acute kidney injury [Recovered/Resolved]

NARRATIVE: CASE EVENT DATE: 20141010
